FAERS Safety Report 7334671 (Version 5)
Quarter: 2013Q4

REPORT INFORMATION
  Report Type: Spontaneous
  Country: US (occurrence: US)
  Receive Date: 20100329
  Receipt Date: 20131223
  Transmission Date: 20140711
  Serious: Yes (Other)
  Sender: FDA-Public Use
  Company Number: US-BAYER-201017524NA

PATIENT
  Age: 30 Year
  Sex: Female
  Weight: 77.1 kg

DRUGS (7)
  1. YAZ [Suspect]
     Indication: CONTRACEPTION
     Dosage: UNK
     Dates: start: 20070718, end: 200812
  2. YAZ [Suspect]
     Indication: CONTRACEPTION
     Dosage: UNK UNK, UNK
     Route: 048
     Dates: start: 200802, end: 200812
  3. ALLEGRA-D [Concomitant]
  4. ANTIBIOTICS [Concomitant]
  5. HYDROCODONE W/APAP [Concomitant]
     Dosage: 5-500, UNK
  6. CEFDINIR [Concomitant]
     Dosage: 300 MG, UNK
     Dates: start: 20080321
  7. VIGAMOX [Concomitant]
     Dosage: 0.5 UNK, UNK
     Dates: start: 20080430

REACTIONS (7)
  - Cholelithiasis [Recovered/Resolved]
  - Cholecystitis acute [None]
  - Abdominal pain upper [Recovered/Resolved]
  - Vomiting [Recovered/Resolved]
  - Dyspnoea [Recovered/Resolved]
  - Chest pain [Recovered/Resolved]
  - Depressive symptom [None]
